FAERS Safety Report 13351343 (Version 4)
Quarter: 2017Q3

REPORT INFORMATION
  Report Type: Report from Study
  Country: BR (occurrence: BR)
  Receive Date: 20170320
  Receipt Date: 20170925
  Transmission Date: 20171127
  Serious: Yes (Life-Threatening, Other)
  Sender: FDA-Public Use
  Company Number: PHHY2017BR019147

PATIENT
  Age: 32 Year
  Sex: Female
  Weight: 54 kg

DRUGS (3)
  1. ILARIS [Suspect]
     Active Substance: CANAKINUMAB
     Indication: CRYOPYRIN ASSOCIATED PERIODIC SYNDROME
     Dosage: 150 MG, ONCE A MONTH
     Route: 058
     Dates: start: 201612
  2. ILARIS [Suspect]
     Active Substance: CANAKINUMAB
     Indication: FAMILIAL COLD AUTOINFLAMMATORY SYNDROME
  3. ILARIS [Suspect]
     Active Substance: CANAKINUMAB
     Indication: POLYARTHRITIS

REACTIONS (22)
  - Foot deformity [Unknown]
  - Peripheral swelling [Unknown]
  - Erythema [Unknown]
  - Decreased immune responsiveness [Unknown]
  - Sensitivity to weather change [Unknown]
  - Energy increased [Unknown]
  - Urinary tract infection [Recovering/Resolving]
  - Pain in extremity [Unknown]
  - Malaise [Unknown]
  - Arthralgia [Unknown]
  - Rhinorrhoea [Unknown]
  - Skin discolouration [Unknown]
  - Movement disorder [Unknown]
  - Inflammation [Unknown]
  - Pyrexia [Unknown]
  - Apparent death [Unknown]
  - Nasopharyngitis [Unknown]
  - Hand deformity [Unknown]
  - Knee deformity [Unknown]
  - Memory impairment [Unknown]
  - Paraesthesia [Unknown]
  - Osteitis [Unknown]

NARRATIVE: CASE EVENT DATE: 20170201
